FAERS Safety Report 9460556 (Version 3)
Quarter: 2016Q2

REPORT INFORMATION
  Report Type: Spontaneous
  Country: CM (occurrence: CM)
  Receive Date: 20130815
  Receipt Date: 20160621
  Transmission Date: 20160815
  Serious: Yes (Other)
  Sender: FDA-Public Use
  Company Number: CM-009507513-1308CMR004203

PATIENT
  Age: 8 Year
  Sex: Male

DRUGS (4)
  1. MECTIZAN [Suspect]
     Active Substance: IVERMECTIN
     Dosage: UNK
     Route: 048
     Dates: start: 2012, end: 2012
  2. MECTIZAN [Suspect]
     Active Substance: IVERMECTIN
     Indication: FILARIASIS LYMPHATIC
     Dosage: 2 DF, ONCE
     Route: 048
     Dates: start: 20130714, end: 20130714
  3. ALBENDAZOLE [Suspect]
     Active Substance: ALBENDAZOLE
     Indication: FILARIASIS LYMPHATIC
     Dosage: 1 DF, ONCE
     Route: 048
     Dates: start: 20130714, end: 20130714
  4. ALBENDAZOLE [Suspect]
     Active Substance: ALBENDAZOLE
     Dosage: UNK
     Dates: start: 2012, end: 2012

REACTIONS (4)
  - Skin ulcer [Recovered/Resolved]
  - Stevens-Johnson syndrome [Recovered/Resolved]
  - Rash vesicular [Unknown]
  - Dermatitis bullous [Recovered/Resolved]

NARRATIVE: CASE EVENT DATE: 2012
